FAERS Safety Report 16754064 (Version 2)
Quarter: 2019Q3

REPORT INFORMATION
  Report Type: Spontaneous
  Country: US (occurrence: US)
  Receive Date: 20190829
  Receipt Date: 20190927
  Transmission Date: 20191005
  Serious: No
  Sender: FDA-Public Use
  Company Number: US-ASTRAZENECA-2019SF12132

PATIENT
  Age: 27789 Day
  Sex: Female
  Weight: 102.1 kg

DRUGS (2)
  1. BYDUREON [Suspect]
     Active Substance: EXENATIDE
     Indication: GLUCOSE TOLERANCE IMPAIRED
     Route: 058
     Dates: start: 20190729, end: 20190801
  2. BYDUREON [Suspect]
     Active Substance: EXENATIDE
     Indication: WEIGHT INCREASED
     Route: 058
     Dates: start: 20190729, end: 20190801

REACTIONS (8)
  - Anxiety [Unknown]
  - Asthenia [Recovering/Resolving]
  - Vomiting [Recovered/Resolved]
  - Product use in unapproved indication [Recovered/Resolved]
  - Nausea [Recovered/Resolved]
  - Headache [Recovering/Resolving]
  - Dizziness [Unknown]
  - Dehydration [Unknown]

NARRATIVE: CASE EVENT DATE: 20190729
